FAERS Safety Report 9426287 (Version 1)
Quarter: 2013Q3

REPORT INFORMATION
  Report Type: Spontaneous
  Country: JP (occurrence: JP)
  Receive Date: 20130730
  Receipt Date: 20130730
  Transmission Date: 20140515
  Serious: Yes (Hospitalization)
  Sender: FDA-Public Use
  Company Number: JP-SHIRE-ALL1-2013-05016

PATIENT
  Age: 60 Year
  Sex: Female

DRUGS (15)
  1. FOSRENOL [Suspect]
     Indication: HYPERPHOSPHATAEMIA
     Dosage: 750 MG, UNKNOWN
     Route: 048
     Dates: start: 20090610, end: 20130226
  2. CALTAN [Concomitant]
     Indication: HYPERPHOSPHATAEMIA
     Dosage: 1500 MG, UNKNOWN
     Dates: start: 20050328, end: 20090818
  3. CALTAN [Concomitant]
     Dosage: 1000 MG, UNKNOWN
     Route: 048
     Dates: start: 20090819, end: 20100511
  4. OXAROL [Concomitant]
     Indication: PRODUCT USED FOR UNKNOWN INDICATION
     Dosage: 2.5 ?G, 1X/WEEK
     Route: 041
     Dates: start: 20090805, end: 20091015
  5. OXAROL [Concomitant]
     Dosage: 5 ?G, 1X/WEEK
     Dates: start: 20091016
  6. OXAROL [Concomitant]
     Dosage: 15 ?G, 1X/WEEK
     Route: 041
     Dates: start: 20110315
  7. OXAROL [Concomitant]
     Dosage: 5 ?G, 1X/WEEK
     Route: 041
     Dates: start: 20110726, end: 20130226
  8. OXAROL [Concomitant]
     Dosage: 5 ?G, 1X/WEEK
     Route: 041
     Dates: start: 20110726, end: 20130226
  9. OXAROL [Concomitant]
     Dosage: 0.25 ?G, 1X/WEEK
     Route: 041
     Dates: start: 20130516
  10. NORVASC [Concomitant]
     Indication: PRODUCT USED FOR UNKNOWN INDICATION
     Dosage: 5 MG, UNKNOWN
     Route: 048
  11. NU-LOTAN [Concomitant]
     Indication: PRODUCT USED FOR UNKNOWN INDICATION
     Dosage: 50 MG, UNKNOWN
     Route: 048
  12. TAKEPRON [Concomitant]
     Indication: PRODUCT USED FOR UNKNOWN INDICATION
     Dosage: 30 MG, UNKNOWN
     Route: 048
  13. KALIMATE [Concomitant]
     Indication: HYPERKALAEMIA
     Dosage: 5 G, UNKNOWN
     Route: 048
     Dates: start: 20091111
  14. EPOGIN [Concomitant]
     Indication: PRODUCT USED FOR UNKNOWN INDICATION
     Dosage: 4500 IU, 1X/WEEK
     Route: 065
     Dates: start: 20090623
  15. FESIN                              /00023550/ [Concomitant]
     Indication: PRODUCT USED FOR UNKNOWN INDICATION
     Dosage: 40 MG, 1X/WEEK
     Route: 048
     Dates: start: 20091021

REACTIONS (2)
  - Hyperparathyroidism secondary [Recovered/Resolved]
  - Condition aggravated [Recovered/Resolved]
